FAERS Safety Report 4921245-8 (Version None)
Quarter: 2006Q1

REPORT INFORMATION
  Report Type: 
  Country: None (occurrence: None)
  Receive Date: 20060222
  Receipt Date: 20060222
  Transmission Date: 20060701
  Serious: Yes (Other)
  Sender: FDA-Public Use
  Company Number: None

PATIENT
  Age: 11 Year
  Sex: Female
  Weight: 49.8957 kg

DRUGS (1)
  1. OVIDE [Suspect]
     Indication: LICE INFESTATION
     Dosage: SUFFICIENT TO WET HAIR + SCALP  1X, THEN AFTER 9 DAYS IF NECESSARY  TOP
     Route: 061
     Dates: start: 20060215, end: 20060215

REACTIONS (1)
  - RESPIRATORY DISTRESS [None]
